FAERS Safety Report 5239112-1 (Version None)
Quarter: 2007Q1

REPORT INFORMATION
  Report Type: 
  Country: None (occurrence: None)
  Receive Date: 20061208
  Receipt Date: 20050506
  Transmission Date: 20070707
  Serious: Yes (Other)
  Sender: FDA-Public Use
  Company Number: 2005UW07135

PATIENT
  Age: 45 Year
  Sex: Male

DRUGS (6)
  1. CRESTOR [Suspect]
     Dosage: 20 MG QD PO
     Route: 048
  2. ATACAND [Suspect]
     Dosage: 16 MG PO
     Route: 048
  3. ATACAND [Suspect]
     Dosage: 32 MG PO
     Route: 048
  4. ACTOS [Suspect]
     Dosage: 15 MG
  5. TOPROL-XL [Concomitant]
  6. ASPIRIN [Concomitant]

REACTIONS (3)
  - BLOOD CHOLESTEROL INCREASED [None]
  - DRUG INTERACTION [None]
  - LOW DENSITY LIPOPROTEIN INCREASED [None]
